FAERS Safety Report 17630882 (Version 1)
Quarter: 2020Q2

REPORT INFORMATION
  Report Type: Report from Study
  Country: CA (occurrence: CA)
  Receive Date: 20200406
  Receipt Date: 20200406
  Transmission Date: 20200713
  Serious: Yes (Other)
  Sender: FDA-Public Use
  Company Number: CA-JNJFOC-20200344075

PATIENT
  Age: 59 Year
  Sex: Female
  Weight: 70 kg

DRUGS (4)
  1. STELARA [Suspect]
     Active Substance: USTEKINUMAB
     Indication: CROHN^S DISEASE
     Route: 058
  2. HYDROCORTISONE. [Concomitant]
     Active Substance: HYDROCORTISONE
     Indication: PREMEDICATION
     Route: 042
  3. BENADRYL [Concomitant]
     Active Substance: DIPHENHYDRAMINE HYDROCHLORIDE
     Indication: PREMEDICATION
     Route: 042
  4. STELARA [Suspect]
     Active Substance: USTEKINUMAB

REACTIONS (2)
  - Nausea [Recovering/Resolving]
  - Injection related reaction [Recovering/Resolving]

NARRATIVE: CASE EVENT DATE: 20200327
